FAERS Safety Report 20708386 (Version 2)
Quarter: 2022Q3

REPORT INFORMATION
  Report Type: Spontaneous
  Country: US (occurrence: US)
  Receive Date: 20220414
  Receipt Date: 20220726
  Transmission Date: 20221027
  Serious: Yes (Other)
  Sender: FDA-Public Use
  Company Number: US-drreddys-SPO/USA/22/0148503

PATIENT
  Age: 68 Year
  Sex: Female
  Weight: 72 kg

DRUGS (8)
  1. NITROGLYCERIN [Suspect]
     Active Substance: NITROGLYCERIN
     Indication: Angina pectoris
     Dosage: 1 TABLET UNDER TONGUE
     Route: 060
     Dates: start: 20210401
  2. MONTELUKAST [Concomitant]
     Active Substance: MONTELUKAST SODIUM
     Indication: Product used for unknown indication
  3. PRAVASTATIN [Concomitant]
     Active Substance: PRAVASTATIN
     Indication: Product used for unknown indication
  4. CLOPIDOGREL [Concomitant]
     Active Substance: CLOPIDOGREL BISULFATE
     Indication: Product used for unknown indication
  5. CARVEDILOL [Concomitant]
     Active Substance: CARVEDILOL
     Indication: Product used for unknown indication
  6. isosorbide monohydrate [Concomitant]
     Indication: Product used for unknown indication
  7. LOSARTAN [Concomitant]
     Active Substance: LOSARTAN
     Indication: Product used for unknown indication
  8. HYDROCHLOROTHIAZIDE [Concomitant]
     Active Substance: HYDROCHLOROTHIAZIDE
     Indication: Product used for unknown indication

REACTIONS (2)
  - Drug ineffective [Unknown]
  - Product solubility abnormal [Unknown]
